FAERS Safety Report 23135165 (Version 2)
Quarter: 2023Q4

REPORT INFORMATION
  Report Type: Report from Study
  Country: MX (occurrence: None)
  Receive Date: 20231101
  Receipt Date: 20231113
  Transmission Date: 20240110
  Serious: Yes (Life-Threatening, Hospitalization, Other)
  Sender: FDA-Public Use
  Company Number: 2023A223587

PATIENT
  Age: 205 Day
  Sex: Male
  Weight: 4.6 kg

DRUGS (4)
  1. SYNAGIS [Suspect]
     Active Substance: PALIVIZUMAB
     Indication: Bronchopulmonary dysplasia
     Dosage: 50 MG/0.5 ML, 0.6 ML MONTHLY0.6ML UNKNOWN
     Route: 030
     Dates: start: 20230927, end: 20230927
  2. SYNAGIS [Suspect]
     Active Substance: PALIVIZUMAB
     Indication: Bronchopulmonary dysplasia
     Dosage: 50 MG/0.5 ML, 0.6 ML MONTHLY0.7ML UNKNOWN
     Route: 030
     Dates: start: 20231025, end: 20231025
  3. BUDESONIDE [Suspect]
     Active Substance: BUDESONIDE
     Indication: Bronchopulmonary dysplasia
     Route: 055
     Dates: start: 20230306
  4. ESOMEPRAZOLE [Suspect]
     Active Substance: ESOMEPRAZOLE
     Indication: Gastrooesophageal reflux disease
     Route: 048
     Dates: start: 202303

REACTIONS (6)
  - Bronchial obstruction [Recovered/Resolved]
  - Drowning [Recovered/Resolved]
  - Vomiting [Recovered/Resolved]
  - Cough [Recovered/Resolved]
  - Choking [Recovered/Resolved]
  - Productive cough [Recovered/Resolved]

NARRATIVE: CASE EVENT DATE: 20230927
